FAERS Safety Report 18861439 (Version 1)
Quarter: 2021Q1

REPORT INFORMATION
  Report Type: Spontaneous
  Country: US (occurrence: US)
  Receive Date: 20210208
  Receipt Date: 20210208
  Transmission Date: 20210420
  Serious: Yes (Other)
  Sender: FDA-Public Use
  Company Number: NVSC2021US026356

PATIENT
  Age: 2 Year
  Sex: Male

DRUGS (4)
  1. MELPHALAN. [Suspect]
     Active Substance: MELPHALAN
     Indication: RETINOBLASTOMA
     Dosage: UNK
     Route: 013
  2. MELPHALAN. [Suspect]
     Active Substance: MELPHALAN
     Dosage: 25 PG (6 INTRAVITREAL INJECTIONS)
     Route: 031
  3. TOPOTECAN [Suspect]
     Active Substance: TOPOTECAN HYDROCHLORIDE
     Indication: RETINOBLASTOMA
     Dosage: UNK
     Route: 013
  4. CARBOPLATIN. [Suspect]
     Active Substance: CARBOPLATIN
     Indication: RETINOBLASTOMA
     Dosage: UNK
     Route: 013

REACTIONS (3)
  - Product use in unapproved indication [Unknown]
  - Exophthalmos [Recovered/Resolved]
  - Myositis [Recovered/Resolved]
